FAERS Safety Report 6725100-2 (Version None)
Quarter: 2010Q2

REPORT INFORMATION
  Report Type: 
  Country: None (occurrence: None)
  Receive Date: 20100514
  Receipt Date: 20100503
  Transmission Date: 20101027
  Serious: Yes (Other)
  Sender: FDA-Public Use
  Company Number: US-BAYER-201014289NA

PATIENT
  Age: 26 Year
  Sex: Female
  Weight: 96 kg

DRUGS (16)
  1. YAZ [Suspect]
     Indication: CONTRACEPTION
     Route: 048
     Dates: start: 20071015, end: 20090601
  2. SERTRALINE [Concomitant]
     Indication: DEPRESSION
     Route: 065
     Dates: start: 20071101
  3. HYDROCODONE [Concomitant]
     Indication: PAIN
     Route: 065
     Dates: start: 20081201, end: 20090401
  4. HYDROCODONE [Concomitant]
     Route: 065
     Dates: start: 20080201
  5. AMOXICILLIN [Concomitant]
     Route: 065
     Dates: start: 20090917
  6. AMOXICILLIN [Concomitant]
     Route: 065
     Dates: start: 20090225
  7. CIPROFLOXACIN [Concomitant]
     Route: 065
     Dates: start: 20090412
  8. MIRENA [Concomitant]
     Dosage: FREQUENCY; CONTINUOUS
     Route: 015
     Dates: start: 20060101
  9. PRENA-CAP [Concomitant]
     Indication: VITAMIN SUPPLEMENTATION
  10. VALTREX [Concomitant]
     Route: 065
     Dates: start: 20070801
  11. AZITHROMYCIN [Concomitant]
     Route: 065
     Dates: start: 20070301
  12. CYCLOBENZAPRINE [Concomitant]
     Route: 065
     Dates: start: 20081201
  13. PROPOXY [Concomitant]
     Route: 065
     Dates: start: 20080201
  14. LORTAB [Concomitant]
     Indication: PAIN
     Route: 048
     Dates: start: 20080214
  15. MORPHINE SULFATE [Concomitant]
     Indication: PAIN
     Route: 042
     Dates: start: 20080214, end: 20080214
  16. PHENERGAN [Concomitant]
     Indication: NAUSEA
     Route: 042
     Dates: start: 20080214, end: 20080214

REACTIONS (5)
  - ABDOMINAL PAIN UPPER [None]
  - CHOLECYSTITIS CHRONIC [None]
  - FOOD INTOLERANCE [None]
  - GALLBLADDER CHOLESTEROLOSIS [None]
  - NAUSEA [None]
